FAERS Safety Report 6055274-0 (Version None)
Quarter: 2009Q1

REPORT INFORMATION
  Report Type: 
  Country: None (occurrence: None)
  Receive Date: 20090122
  Receipt Date: 20090107
  Transmission Date: 20090719
  Serious: Yes (Death, Hospitalization, Other)
  Sender: FDA-Public Use
  Company Number: 55798

PATIENT
  Age: 50 Year
  Sex: Female

DRUGS (1)
  1. MIDAZOLAM HCL [Suspect]
     Indication: ENDOTRACHEAL INTUBATION
     Dosage: 9MG
     Dates: start: 20080828

REACTIONS (1)
  - BRADYCARDIA [None]
